FAERS Safety Report 10470475 (Version 1)
Quarter: 2014Q3

REPORT INFORMATION
  Report Type: Spontaneous
  Country: US (occurrence: None)
  Receive Date: 20140915
  Receipt Date: 20140915
  Transmission Date: 20150326
  Serious: Yes (Hospitalization)
  Sender: FDA-Public Use
  Company Number: UCM201406-000100

PATIENT
  Age: 2 Year
  Sex: Female

DRUGS (1)
  1. TIZANIDINE (TIZANIDINE) (TIZANIDINE) [Suspect]
     Active Substance: TIZANIDINE

REACTIONS (1)
  - Accidental overdose [None]

NARRATIVE: CASE EVENT DATE: 20131223
